FAERS Safety Report 14381227 (Version 1)
Quarter: 2018Q1

REPORT INFORMATION
  Report Type: Spontaneous
  Country: US (occurrence: US)
  Receive Date: 20180112
  Receipt Date: 20180112
  Transmission Date: 20180509
  Serious: Yes (Other)
  Sender: FDA-Public Use
  Company Number: US-NOVOPROD-580457

PATIENT
  Age: 83 Year
  Sex: Female
  Weight: 48.53 kg

DRUGS (2)
  1. NOVOLIN 70/30 [Suspect]
     Active Substance: INSULIN HUMAN
     Indication: TYPE 2 DIABETES MELLITUS
     Dosage: 15 U, BID
     Route: 058
     Dates: start: 2014, end: 2015
  2. NOVOLIN 70/30 [Suspect]
     Active Substance: INSULIN HUMAN
     Dosage: 9 U, BID
     Route: 058
     Dates: start: 2015

REACTIONS (5)
  - Candida infection [Unknown]
  - Blindness unilateral [Not Recovered/Not Resolved]
  - Aphasia [Unknown]
  - Kidney infection [Unknown]
  - Systemic infection [Unknown]

NARRATIVE: CASE EVENT DATE: 2015
